FAERS Safety Report 11273249 (Version 1)
Quarter: 2015Q3

REPORT INFORMATION
  Report Type: Other
  Country: None (occurrence: GB)
  Receive Date: 20150715
  Receipt Date: 20150715
  Transmission Date: 20151125
  Serious: Yes (Other)
  Sender: FDA-Public Use
  Company Number: GB-PERRIGO-15GB007014

PATIENT
  Age: 46 Year
  Sex: Male
  Weight: 70 kg

DRUGS (2)
  1. NAPROXEN 250MG 16028/0144 [Suspect]
     Active Substance: NAPROXEN
     Indication: GOUT
     Dosage: 250 MG, TID
     Route: 065
     Dates: start: 20150515
  2. INDOMETHACIN                       /00003801/ [Concomitant]
     Active Substance: INDOMETHACIN
     Indication: GOUT
     Dosage: 50 MG, QID
     Route: 048
     Dates: start: 20150429, end: 20150515

REACTIONS (1)
  - Abnormal dreams [Not Recovered/Not Resolved]

NARRATIVE: CASE EVENT DATE: 20150515
